FAERS Safety Report 14776156 (Version 2)
Quarter: 2018Q2

REPORT INFORMATION
  Report Type: Spontaneous
  Country: NL (occurrence: AN)
  Receive Date: 20180418
  Receipt Date: 20180420
  Transmission Date: 20180711
  Serious: Yes (Death)
  Sender: FDA-Public Use
  Company Number: NL-BIOMARINAP-NL-2018-117908

PATIENT
  Age: 24 Year
  Sex: Male
  Weight: 45 kg

DRUGS (2)
  1. SALBUTAMOL W/IPRATROPIUM [Concomitant]
     Active Substance: ALBUTEROL\IPRATROPIUM
     Indication: PRODUCT USED FOR UNKNOWN INDICATION
  2. NAGLAZYME [Suspect]
     Active Substance: GALSULFASE
     Indication: MUCOPOLYSACCHARIDOSIS VI
     Dosage: 45 MG, QW
     Route: 042
     Dates: start: 2015

REACTIONS (4)
  - Tracheomalacia [Unknown]
  - Respiratory failure [Fatal]
  - Nasopharyngitis [Unknown]
  - Cough [Unknown]

NARRATIVE: CASE EVENT DATE: 201705
